FAERS Safety Report 8926787 (Version 1)
Quarter: 2012Q4

REPORT INFORMATION
  Report Type: 
  Country: GB (occurrence: GB)
  Receive Date: 20121127
  Receipt Date: 20121127
  Transmission Date: 20130627
  Serious: Yes (Other)
  Sender: FDA-Public Use
  Company Number: GB-TEVA-371694ISR

PATIENT

DRUGS (3)
  1. ERYTHROMYCIN [Suspect]
     Indication: SINUSITIS
     Route: 064
     Dates: start: 20121030, end: 20121105
  2. PARACETAMOL [Concomitant]
  3. OLBAS OIL [Concomitant]
     Indication: NASAL CONGESTION

REACTIONS (2)
  - Foetal hypokinesia [Recovered/Resolved]
  - Foetal heart rate decreased [Recovered/Resolved]
